FAERS Safety Report 5708468-5 (Version None)
Quarter: 2008Q2

REPORT INFORMATION
  Report Type: 
  Country: None (occurrence: None)
  Receive Date: 20080417
  Receipt Date: 20080409
  Transmission Date: 20081010
  Serious: Yes (Life-Threatening, Hospitalization, Other)
  Sender: FDA-Public Use
  Company Number: US-PFIZER INC-2008014279

PATIENT

DRUGS (1)
  1. CELEBREX [Suspect]

REACTIONS (1)
  - RHABDOMYOLYSIS [None]
